FAERS Safety Report 9305437 (Version 1)
Quarter: 2013Q2

REPORT INFORMATION
  Report Type: Report from Study
  Country: GB (occurrence: GB)
  Receive Date: 20130523
  Receipt Date: 20130523
  Transmission Date: 20140414
  Serious: Yes (Hospitalization)
  Sender: FDA-Public Use
  Company Number: GB-ASTRAZENECA-2013SE34043

PATIENT
  Age: 23512 Day
  Sex: Male
  Weight: 57.1 kg

DRUGS (4)
  1. ZD6474 [Suspect]
     Indication: PANCREATIC CARCINOMA
     Route: 048
     Dates: start: 20130218
  2. GEMCITABINE [Suspect]
     Indication: PANCREATIC CARCINOMA
     Route: 042
     Dates: start: 20130218
  3. FLUOXETINE [Concomitant]
     Indication: DEPRESSION
     Route: 048
  4. PARACETAMOL [Concomitant]
     Indication: ANALGESIC THERAPY
     Route: 048

REACTIONS (1)
  - Bronchitis [Not Recovered/Not Resolved]
